FAERS Safety Report 13954332 (Version 4)
Quarter: 2017Q4

REPORT INFORMATION
  Report Type: Spontaneous
  Country: US (occurrence: US)
  Receive Date: 20170911
  Receipt Date: 20171011
  Transmission Date: 20180320
  Serious: Yes (Hospitalization, Other)
  Sender: FDA-Public Use
  Company Number: US-BAUSCH-BL-2017-025672

PATIENT
  Age: 85 Year
  Sex: Male

DRUGS (3)
  1. BENADRYL [Suspect]
     Active Substance: DIPHENHYDRAMINE HYDROCHLORIDE
     Indication: CHILLS
     Route: 065
     Dates: start: 20170814
  2. PROVENGE [Suspect]
     Active Substance: SIPULEUCEL-T
     Indication: PROSTATE CANCER
     Route: 042
     Dates: start: 20170814, end: 20170814
  3. BENADRYL [Suspect]
     Active Substance: DIPHENHYDRAMINE HYDROCHLORIDE
     Indication: RASH
     Dosage: 50
     Route: 065
     Dates: start: 20170817

REACTIONS (14)
  - Dysarthria [Unknown]
  - Infusion site erythema [Unknown]
  - Back pain [Unknown]
  - Hospitalisation [Unknown]
  - Lethargy [Unknown]
  - Mental status changes [Recovered/Resolved]
  - Chills [Not Recovered/Not Resolved]
  - Ischaemic stroke [Unknown]
  - Dysphonia [Unknown]
  - Tremor [Unknown]
  - Rash [Recovered/Resolved]
  - Hypertension [Recovered/Resolved]
  - Erythema [Unknown]
  - Confusional state [Unknown]

NARRATIVE: CASE EVENT DATE: 2017
